FAERS Safety Report 6076498-2 (Version None)
Quarter: 2009Q1

REPORT INFORMATION
  Report Type: 
  Country: None (occurrence: None)
  Receive Date: 20090209
  Receipt Date: 20090120
  Transmission Date: 20090719
  Serious: Yes (Other)
  Sender: FDA-Public Use
  Company Number: 09-ADE-SU-0001-DOR

PATIENT
  Age: 39 Year
  Sex: Female

DRUGS (4)
  1. DORAL [Suspect]
     Indication: DYSTHYMIC DISORDER
     Dosage: 15 MG PO
     Route: 048
     Dates: start: 20080808, end: 20080924
  2. RIZE (CLOTIAZEPAM) [Concomitant]
  3. GOODMIN (BROTIZOLAM) [Concomitant]
  4. PAXIL (PAREXETINE HYDROCHLORIDE HYDRATE) [Concomitant]

REACTIONS (4)
  - DRUG ERUPTION [None]
  - ECZEMA [None]
  - INFECTION [None]
  - PRURITUS [None]
